FAERS Safety Report 5122792-9 (Version None)
Quarter: 2006Q4

REPORT INFORMATION
  Report Type: 
  Country: None (occurrence: None)
  Receive Date: 20061009
  Receipt Date: 20060124
  Transmission Date: 20070319
  Serious: Yes (Death)
  Sender: FDA-Public Use
  Company Number: IT-BRACCO-BCM-000973

PATIENT
  Sex: Male

DRUGS (2)
  1. IOPAMIRO [Suspect]
     Indication: DYSPNOEA
     Route: 042
     Dates: start: 20060118, end: 20060118
  2. IOPAMIRO [Suspect]
     Route: 042
     Dates: start: 20060118, end: 20060118

REACTIONS (3)
  - CARDIAC ARREST [None]
  - DYSPNOEA [None]
  - VOMITING [None]
